FAERS Safety Report 5199055-9 (Version None)
Quarter: 2006Q4

REPORT INFORMATION
  Report Type: 
  Country: None (occurrence: None)
  Receive Date: 20061016
  Receipt Date: 20060619
  Transmission Date: 20070319
  Serious: No
  Sender: FDA-Public Use
  Company Number: 2006SP002457

PATIENT
  Age: 67 Year
  Sex: Female
  Weight: 95.2554 kg

DRUGS (14)
  1. LUNESTA [Suspect]
     Indication: INITIAL INSOMNIA
     Dosage: SEE IMAGE
     Route: 048
     Dates: start: 20050101, end: 20050101
  2. LUNESTA [Suspect]
     Indication: INITIAL INSOMNIA
     Dosage: SEE IMAGE
     Route: 048
     Dates: start: 20050101, end: 20060101
  3. LUNESTA [Suspect]
     Indication: INITIAL INSOMNIA
     Dosage: SEE IMAGE
     Route: 048
     Dates: start: 20060101
  4. LUNESTA [Suspect]
     Indication: INITIAL INSOMNIA
     Dosage: SEE IMAGE
     Route: 048
     Dates: start: 20060101
  5. GLYBURIDE [Concomitant]
  6. ANASTROZOLE [Concomitant]
  7. TRICOR [Concomitant]
  8. METFORMIN HCL [Concomitant]
  9. QUINAPRIL [Concomitant]
  10. VITAMINS [Concomitant]
  11. CALCIUM [Concomitant]
  12. VYTORIN [Concomitant]
  13. PIOGLITAZONE HCL [Concomitant]
  14. GLUCOSAMINE W/CHONDROITIN [Concomitant]

REACTIONS (3)
  - HEADACHE [None]
  - INSOMNIA [None]
  - VISUAL DISTURBANCE [None]
